FAERS Safety Report 11971468 (Version 2)
Quarter: 2016Q3

REPORT INFORMATION
  Report Type: Spontaneous
  Country: US (occurrence: US)
  Receive Date: 20160128
  Receipt Date: 20160725
  Transmission Date: 20161109
  Serious: Yes (Hospitalization, Other)
  Sender: FDA-Public Use
  Company Number: US-BIOGEN-2015BI004322

PATIENT
  Age: 53 Year
  Sex: Female

DRUGS (4)
  1. LISINOPRIL. [Concomitant]
     Active Substance: LISINOPRIL
     Indication: PRODUCT USED FOR UNKNOWN INDICATION
     Route: 065
  2. TECFIDERA [Suspect]
     Active Substance: DIMETHYL FUMARATE
     Indication: MULTIPLE SCLEROSIS
     Route: 065
  3. CARBAMAZEPINE. [Concomitant]
     Active Substance: CARBAMAZEPINE
     Indication: PRODUCT USED FOR UNKNOWN INDICATION
     Route: 065
  4. AMPYRA [Concomitant]
     Active Substance: DALFAMPRIDINE
     Indication: PRODUCT USED FOR UNKNOWN INDICATION
     Route: 048
     Dates: start: 20131002

REACTIONS (9)
  - Bipolar disorder [Unknown]
  - Suicidal ideation [Unknown]
  - Limb injury [Unknown]
  - Aphasia [Not Recovered/Not Resolved]
  - Malaise [Not Recovered/Not Resolved]
  - Neuralgia [Recovered/Resolved]
  - Insomnia [Recovered/Resolved]
  - Facial pain [Not Recovered/Not Resolved]
  - Mental disorder [Unknown]

NARRATIVE: CASE EVENT DATE: 20160523
